FAERS Safety Report 4358691-X (Version None)
Quarter: 2004Q2

REPORT INFORMATION
  Report Type: 
  Country: None (occurrence: None)
  Receive Date: 20040514
  Receipt Date: 20040514
  Transmission Date: 20050107
  Serious: Yes (Life-Threatening)
  Sender: FDA-Public Use
  Company Number: None

PATIENT
  Age: 16 Year
  Sex: Female
  Weight: 54.8852 kg

DRUGS (5)
  1. SERTRALINE HCL [Suspect]
     Indication: ABNORMAL BEHAVIOUR
     Dosage: SETRALINE QD
     Dates: start: 20040417, end: 20040426
  2. SERTRALINE HCL [Suspect]
     Indication: DEPRESSION
     Dosage: SETRALINE QD
     Dates: start: 20040417, end: 20040426
  3. SERTRALINE HCL [Suspect]
     Indication: INJURY
     Dosage: SETRALINE QD
     Dates: start: 20040417, end: 20040426
  4. SERTRALINE HCL [Suspect]
     Indication: NERVOUS SYSTEM DISORDER
     Dosage: SETRALINE QD
     Dates: start: 20040417, end: 20040426
  5. ZYVOX [Suspect]
     Indication: INFECTION
     Dosage: ZYVOX BID
     Dates: start: 20040424, end: 20040426

REACTIONS (1)
  - PYREXIA [None]
